FAERS Safety Report 18542198 (Version 2)
Quarter: 2020Q4

REPORT INFORMATION
  Report Type: Spontaneous
  Country: FR (occurrence: FR)
  Receive Date: 20201124
  Receipt Date: 20201208
  Transmission Date: 20210114
  Serious: Yes (Death, Hospitalization, Other)
  Sender: FDA-Public Use
  Company Number: FR-BAUSCH-BL-2020-034174

PATIENT
  Age: 25 Year
  Sex: Female

DRUGS (5)
  1. ROPIVACAINE. [Concomitant]
     Active Substance: ROPIVACAINE HYDROCHLORIDE
     Indication: ANALGESIC THERAPY
     Dosage: 1 MILLIGRAM/MILLILITRE
     Route: 065
  2. PREDNISOLONE. [Interacting]
     Active Substance: PREDNISOLONE
     Indication: PRODUCT USED FOR UNKNOWN INDICATION
     Dosage: 40 MILLIGRAM
     Route: 048
  3. HYDROCORTISONE. [Suspect]
     Active Substance: HYDROCORTISONE
     Indication: PRODUCT USED FOR UNKNOWN INDICATION
     Dosage: 100 MILLIGRAM
     Route: 042
  4. MEROPENEM. [Concomitant]
     Active Substance: MEROPENEM
     Indication: PRODUCT USED FOR UNKNOWN INDICATION
     Dosage: 2 GRAM, 3 TIMES A DAY
     Route: 042
  5. MIFEPRISTONE [Interacting]
     Active Substance: MIFEPRISTONE
     Indication: ABORTION INDUCED
     Dosage: 200 MILLIGRAM, SINGLE DOSE
     Route: 048

REACTIONS (10)
  - Respiratory rate decreased [Unknown]
  - Hypoxic-ischaemic encephalopathy [Unknown]
  - Dyspnoea at rest [Unknown]
  - Metabolic alkalosis [Unknown]
  - Increased bronchial secretion [Unknown]
  - Respiratory failure [Fatal]
  - Drug interaction [Unknown]
  - Hypercapnia [Unknown]
  - Chest discomfort [Unknown]
  - Pneumonia [Unknown]
